FAERS Safety Report 7732877-6 (Version None)
Quarter: 2011Q3

REPORT INFORMATION
  Report Type: 
  Country: None (occurrence: None)
  Receive Date: 20110902
  Receipt Date: 20110902
  Transmission Date: 20111222
  Serious: Yes (Life-Threatening, Hospitalization)
  Sender: FDA-Public Use
  Company Number: None

PATIENT
  Age: 57 Year
  Sex: Female
  Weight: 87.6 kg

DRUGS (20)
  1. COUMADIN [Concomitant]
  2. IMURAN [Concomitant]
  3. VYTORIN [Concomitant]
  4. SPIRONOLACTONE [Suspect]
     Indication: HYPERTENSION
     Dosage: 25 MG DAILY PO  MONTHS TO YEARS
     Route: 048
  5. SILDENAFIL CITRATE [Concomitant]
  6. OXYCONTIN [Concomitant]
  7. KCL TAB [Suspect]
     Indication: RENAL FAILURE CHRONIC
     Dosage: 80 MEQ TID PO  MONTHS TO YEARS
     Route: 048
  8. MYLANTA [Concomitant]
  9. DILTIAZEM [Concomitant]
  10. ACETAZOLAMIDE [Concomitant]
  11. POTASSIUM CHLORIDE [Concomitant]
  12. METOLAZONE [Concomitant]
  13. PREDNISONE [Concomitant]
  14. SALMETEROL [Concomitant]
  15. KEFLEX [Concomitant]
  16. ASPIRIN [Concomitant]
  17. COREG [Concomitant]
  18. RANITIDINE [Concomitant]
  19. TORSEMIDE [Concomitant]
  20. PERCOCET [Concomitant]

REACTIONS (3)
  - RENAL IMPAIRMENT [None]
  - HYPERKALAEMIA [None]
  - CARDIO-RESPIRATORY ARREST [None]
